FAERS Safety Report 5363552-3 (Version None)
Quarter: 2007Q2

REPORT INFORMATION
  Report Type: 
  Country: None (occurrence: None)
  Receive Date: 20070618
  Receipt Date: 20070618
  Transmission Date: 20071010
  Serious: No
  Sender: FDA-Public Use
  Company Number: None

PATIENT
  Age: 31 Year
  Sex: Male
  Weight: 108.4097 kg

DRUGS (1)
  1. CYMBALTA [Suspect]
     Dosage: 30 MG ONCE A DAY PO
     Route: 048
     Dates: start: 20070606, end: 20070617

REACTIONS (2)
  - HYPERHIDROSIS [None]
  - RASH [None]
